FAERS Safety Report 15694974 (Version 1)
Quarter: 2018Q4

REPORT INFORMATION
  Report Type: Spontaneous
  Country: ES (occurrence: ES)
  Receive Date: 20181206
  Receipt Date: 20181206
  Transmission Date: 20190205
  Serious: Yes (Hospitalization)
  Sender: FDA-Public Use
  Company Number: ES-ELI_LILLY_AND_COMPANY-ES201812000369

PATIENT
  Age: 81 Year
  Sex: Female

DRUGS (11)
  1. AMLODIPINE [Concomitant]
     Active Substance: AMLODIPINE BESYLATE
  2. OMEPRAZOLE. [Concomitant]
     Active Substance: OMEPRAZOLE
  3. FUROSEMIDE. [Concomitant]
     Active Substance: FUROSEMIDE
  4. NTG [Concomitant]
     Active Substance: NITROGLYCERIN
  5. RIVAROXABAN [Concomitant]
     Active Substance: RIVAROXABAN
  6. LANTUS [Concomitant]
     Active Substance: INSULIN GLARGINE
  7. CARVEDILOL. [Concomitant]
     Active Substance: CARVEDILOL
  8. METFORMIN;VILDAGLIPTIN [Concomitant]
     Active Substance: METFORMIN\VILDAGLIPTIN
  9. TRULICITY [Suspect]
     Active Substance: DULAGLUTIDE
     Indication: PRODUCT USED FOR UNKNOWN INDICATION
     Dosage: 1.5 MG, WEEKLY (1/W)
     Route: 058
     Dates: start: 20171021
  10. VALSARTAN. [Concomitant]
     Active Substance: VALSARTAN
  11. ATORVASTATIN [Concomitant]
     Active Substance: ATORVASTATIN

REACTIONS (3)
  - Subcutaneous emphysema [Unknown]
  - Pneumoperitoneum [Unknown]
  - Gastrooesophageal reflux disease [Unknown]
